FAERS Safety Report 6188588-4 (Version None)
Quarter: 2009Q2

REPORT INFORMATION
  Report Type: 
  Country: None (occurrence: None)
  Receive Date: 20090513
  Receipt Date: 20090505
  Transmission Date: 20091009
  Serious: Yes (Disabling, Other)
  Sender: FDA-Public Use
  Company Number: A0782579A

PATIENT
  Sex: Female

DRUGS (2)
  1. LAMICTAL [Suspect]
     Indication: BIPOLAR DISORDER
     Dosage: 25MG PER DAY
     Route: 048
     Dates: start: 20090416, end: 20090418
  2. NO CONCURRENT MEDICATION [Concomitant]

REACTIONS (3)
  - PIGMENTATION DISORDER [None]
  - RASH GENERALISED [None]
  - SKIN DISCOLOURATION [None]
